FAERS Safety Report 7837776 (Version 3)
Quarter: 2013Q1

REPORT INFORMATION
  Report Type: Spontaneous
  Country: US (occurrence: US)
  Receive Date: 20110302
  Receipt Date: 20130118
  Transmission Date: 20140127
  Serious: Yes (Hospitalization, Other)
  Sender: FDA-Public Use
  Company Number: US-PFIZER INC-2010085406

PATIENT
  Age: 77 Year
  Sex: Female

DRUGS (5)
  1. DILANTIN [Suspect]
     Indication: CONVULSION
     Dosage: 100 MG, 3X/DAY
     Route: 048
     Dates: start: 20040707, end: 20040730
  2. CARDIZEM CD [Concomitant]
     Indication: BLOOD PRESSURE
     Dosage: 240 MG, 1X/DAY
     Route: 048
  3. DIOVAN (VALSARTAN) [Concomitant]
     Dosage: 180 MG, 1X/DAY
     Route: 048
     Dates: start: 20040625
  4. CELEXA [Concomitant]
     Indication: BLOOD PRESSURE
     Dosage: 40 MG, 1X/DAY
     Route: 048
  5. XANAX [Concomitant]
     Dosage: 0.25 MG, EVERY 4 HRS AS NEEDED

REACTIONS (1)
  - Stevens-Johnson syndrome [Recovering/Resolving]
